FAERS Safety Report 17953301 (Version 1)
Quarter: 2020Q2

REPORT INFORMATION
  Report Type: Spontaneous
  Country: FR (occurrence: FR)
  Receive Date: 20200627
  Receipt Date: 20200627
  Transmission Date: 20200714
  Serious: Yes (Life-Threatening, Hospitalization, Other)
  Sender: FDA-Public Use
  Company Number: NVSC2020FR180272

PATIENT
  Age: 71 Year
  Sex: Male
  Weight: 78 kg

DRUGS (17)
  1. CIPROFLOXACIN. [Concomitant]
     Active Substance: CIPROFLOXACIN
     Indication: DERMO-HYPODERMITIS
     Dosage: UNK (UNK UNK, UNKNOWN FREQ.)
     Route: 065
     Dates: start: 201601
  2. MIMPARA [Concomitant]
     Active Substance: CINACALCET HYDROCHLORIDE
     Indication: PRODUCT USED FOR UNKNOWN INDICATION
     Dosage: 1 DF, QD (1 DF, ONCE DAILY (NIGHT))
     Route: 065
  3. ACETAMINOPHEN. [Concomitant]
     Active Substance: ACETAMINOPHEN
     Indication: PAIN
  4. DALACIN [Suspect]
     Active Substance: CLINDAMYCIN
     Indication: STAPHYLOCOCCAL BACTERAEMIA
     Dosage: UNK (UNK UNK, UNKNOWN FREQ)
     Route: 065
  5. OXACILLIN [Suspect]
     Active Substance: OXACILLIN SODIUM
     Indication: STAPHYLOCOCCAL SEPSIS
     Dosage: 1 G, Q6H
     Route: 042
     Dates: start: 20200114, end: 20200115
  6. AMLODIPINE [Concomitant]
     Active Substance: AMLODIPINE BESYLATE
     Indication: PRODUCT USED FOR UNKNOWN INDICATION
     Dosage: 2 DF, ONCE DAILY (MORNING)
     Route: 065
  7. INSULIN [Concomitant]
     Active Substance: INSULIN NOS
     Indication: TYPE 2 DIABETES MELLITUS
     Dosage: UNK (UNK UNK, UNKNOWN FREQ.)
     Route: 065
     Dates: start: 2013
  8. LANTUS [Concomitant]
     Active Substance: INSULIN GLARGINE
     Indication: PRODUCT USED FOR UNKNOWN INDICATION
     Dosage: UNK (300 U/3 ML INJECTION SOLUTION, CARTRIDGE: 40 U, NIGHT)
     Route: 065
  9. ACETAMINOPHEN. [Concomitant]
     Active Substance: ACETAMINOPHEN
     Indication: HYPERTHERMIA
     Dosage: 2 DF, Q6H
     Route: 065
  10. RIFAMPICIN [Suspect]
     Active Substance: RIFAMPIN
     Indication: BACTERAEMIA
     Dosage: 1 DF, Q12H
     Route: 048
     Dates: start: 20200116
  11. KEPPRA [Suspect]
     Active Substance: LEVETIRACETAM
     Indication: EPILEPSY
     Dosage: UNK (500MG/24 H PLUS 250 MG AFTER THE DIALYSIS SESSIONS)
     Route: 042
     Dates: start: 20200120
  12. ORBENINE [Suspect]
     Active Substance: CLOXACILLIN SODIUM
     Indication: STAPHYLOCOCCAL INFECTION
     Dosage: 2 G, Q4H (2 G, EVERY 4 HOURS)
     Route: 041
     Dates: start: 20200115, end: 20200123
  13. CLOPIDOGREL [Concomitant]
     Active Substance: CLOPIDOGREL BISULFATE
     Indication: PRODUCT USED FOR UNKNOWN INDICATION
     Dosage: 1 DF, QD (1 DF, ONCE DAILY (NOON))
     Route: 065
  14. LANSOPRAZOLE. [Concomitant]
     Active Substance: LANSOPRAZOLE
     Indication: PRODUCT USED FOR UNKNOWN INDICATION
     Dosage: 1 DF, QD (1 DF, ONCE DAILY (NIGHT, 30 MINUTES BEFORE MEAL))
     Route: 065
  15. OXACILLIN [Suspect]
     Active Substance: OXACILLIN SODIUM
     Dosage: 1 G, Q4H (1 G, EVERY 4 HOURS)
     Route: 042
     Dates: start: 20200115
  16. FUROSEMIDE. [Concomitant]
     Active Substance: FUROSEMIDE
     Indication: PRODUCT USED FOR UNKNOWN INDICATION
     Dosage: 1 DF, Q12H (1 DF, TWICE DAILY (MORNING AND NOON))
     Route: 065
  17. PREGABALIN. [Concomitant]
     Active Substance: PREGABALIN
     Indication: PRODUCT USED FOR UNKNOWN INDICATION
     Dosage: 1 DF, Q12H (1 DF, TWICE DAILY (1 CAPSULE MORNING AND NIGHT, Q.S. 1 MONTH))
     Route: 065

REACTIONS (21)
  - Product use in unapproved indication [Unknown]
  - Macrocytosis [Unknown]
  - Acute coronary syndrome [Unknown]
  - Electrocardiogram repolarisation abnormality [Unknown]
  - Hypoglycaemia [Unknown]
  - Troponin increased [Unknown]
  - Epilepsy [Unknown]
  - Thrombocytopenia [Unknown]
  - Generalised tonic-clonic seizure [Unknown]
  - Klebsiella infection [Unknown]
  - Abdominal pain [Unknown]
  - Diarrhoea [Unknown]
  - Brain contusion [Unknown]
  - Anaemia [Unknown]
  - Respiratory arrest [Recovered/Resolved]
  - Systemic inflammatory response syndrome [Unknown]
  - Extradural haematoma [Unknown]
  - Malaise [Unknown]
  - Vasculitis necrotising [Unknown]
  - Somnolence [Unknown]
  - Bicytopenia [Unknown]

NARRATIVE: CASE EVENT DATE: 20200119
